FAERS Safety Report 6688252-9 (Version None)
Quarter: 2010Q2

REPORT INFORMATION
  Report Type: 
  Country: None (occurrence: None)
  Receive Date: 20100420
  Receipt Date: 20100413
  Transmission Date: 20101027
  Serious: Yes (Other)
  Sender: FDA-Public Use
  Company Number: US-SANOFI-AVENTIS-2010SA021551

PATIENT
  Age: 68 Year
  Sex: Male
  Weight: 108.86 kg

DRUGS (11)
  1. MULTAQ [Suspect]
     Indication: ATRIAL FIBRILLATION
     Route: 048
     Dates: start: 20091101
  2. AMLODIPINE [Concomitant]
  3. DIOVAN HCT [Concomitant]
  4. ECOTRIN [Concomitant]
  5. LEVOTHYROXINE [Concomitant]
  6. METFORMIN HCL [Concomitant]
  7. METOPROLOL TARTRATE [Concomitant]
  8. SALBUTAMOL [Concomitant]
  9. SIMVASTATIN [Concomitant]
  10. WARFARIN SODIUM [Concomitant]
  11. ONE-A-DAY [Concomitant]

REACTIONS (7)
  - ANGER [None]
  - BRADYCARDIA [None]
  - CONTUSION [None]
  - DROOLING [None]
  - FATIGUE [None]
  - HYPOTENSION [None]
  - TACHYCARDIA [None]
